FAERS Safety Report 7194530-X (Version None)
Quarter: 2010Q4

REPORT INFORMATION
  Report Type: 
  Country: None (occurrence: None)
  Receive Date: 20101223
  Receipt Date: 20101214
  Transmission Date: 20110411
  Serious: Yes (Hospitalization)
  Sender: FDA-Public Use
  Company Number: BR-WATSON-2010-16294

PATIENT
  Age: 63 Year
  Sex: Female

DRUGS (2)
  1. TIMOLOL (WATSON LABORATORIES) [Suspect]
     Indication: GLAUCOMA
     Dosage: UNK
     Route: 047
  2. DORZOLAMIDE [Suspect]
     Indication: GLAUCOMA
     Dosage: UNK
     Route: 047

REACTIONS (3)
  - PITYRIASIS LICHENOIDES ET VARIOLIFORMIS ACUTA [None]
  - RASH [None]
  - THROMBOCYTOPENIA [None]
